FAERS Safety Report 4897865-6 (Version None)
Quarter: 2006Q1

REPORT INFORMATION
  Report Type: 
  Country: None (occurrence: None)
  Receive Date: 20060201
  Receipt Date: 20060125
  Transmission Date: 20060701
  Serious: Yes (Death, Other)
  Sender: FDA-Public Use
  Company Number: 2005JP002309

PATIENT
  Age: 71 Year
  Sex: Male

DRUGS (22)
  1. CEFAZOLIN [Suspect]
     Indication: DRUG USE FOR UNKNOWN INDICATION
     Route: 042
     Dates: start: 20040627, end: 20040706
  2. UNASYN [Suspect]
     Indication: DRUG USE FOR UNKNOWN INDICATION
     Route: 042
     Dates: start: 20040723, end: 20040726
  3. RIFADIN [Concomitant]
     Indication: DRUG USE FOR UNKNOWN INDICATION
  4. ISCOTIN [Concomitant]
     Indication: DRUG USE FOR UNKNOWN INDICATION
  5. ESANBUTOL [Concomitant]
     Indication: DRUG USE FOR UNKNOWN INDICATION
  6. BASEN [Concomitant]
     Indication: DRUG USE FOR UNKNOWN INDICATION
  7. GLIBENCLAMIDE [Concomitant]
     Indication: DRUG USE FOR UNKNOWN INDICATION
  8. DOPAMINE HCL [Concomitant]
     Indication: DRUG USE FOR UNKNOWN INDICATION
  9. DOBUTREX [Concomitant]
     Indication: DRUG USE FOR UNKNOWN INDICATION
  10. DORMICUM [Concomitant]
     Indication: DRUG USE FOR UNKNOWN INDICATION
  11. LEPETAN [Concomitant]
     Indication: DRUG USE FOR UNKNOWN INDICATION
  12. FUTHAN [Concomitant]
     Indication: DRUG USE FOR UNKNOWN INDICATION
  13. ELASPOL [Concomitant]
     Indication: DRUG USE FOR UNKNOWN INDICATION
  14. DIPRIVAN [Concomitant]
     Indication: DRUG USE FOR UNKNOWN INDICATION
  15. NORADRENALINE [Concomitant]
     Indication: DRUG USE FOR UNKNOWN INDICATION
  16. OMEPRAL [Concomitant]
     Indication: DRUG USE FOR UNKNOWN INDICATION
  17. GENTACIN [Concomitant]
     Indication: DRUG USE FOR UNKNOWN INDICATION
  18. NEO-MINOPHAGEN [Concomitant]
     Indication: DRUG USE FOR UNKNOWN INDICATION
  19. SULPERAZON [Concomitant]
     Indication: DRUG USE FOR UNKNOWN INDICATION
  20. SAXIZON [Concomitant]
     Indication: DRUG USE FOR UNKNOWN INDICATION
  21. BISOLVON [Concomitant]
     Indication: DRUG USE FOR UNKNOWN INDICATION
  22. ALBUMIN (HUMAN) [Concomitant]
     Indication: DRUG USE FOR UNKNOWN INDICATION

REACTIONS (7)
  - DRUG ERUPTION [None]
  - ERYTHEMA [None]
  - GASTRIC ULCER HAEMORRHAGE [None]
  - GENERAL PHYSICAL HEALTH DETERIORATION [None]
  - MULTI-ORGAN FAILURE [None]
  - SEPSIS [None]
  - TOXIC EPIDERMAL NECROLYSIS [None]
